FAERS Safety Report 23975790 (Version 2)
Quarter: 2024Q2

REPORT INFORMATION
  Report Type: Spontaneous
  Country: GB (occurrence: GB)
  Receive Date: 20240614
  Receipt Date: 20240621
  Transmission Date: 20240715
  Serious: Yes (Hospitalization, Other)
  Sender: FDA-Public Use
  Company Number: GB-CELLTRION INC.-2024GB013683

PATIENT

DRUGS (9)
  1. RITUXIMAB [Suspect]
     Active Substance: RITUXIMAB
     Indication: Anti-glomerular basement membrane disease
     Dosage: 1 GRAM, TOTAL (ADMINISTERED ON DAY 11 AFTER TRANSFER)
  2. PREDNISOLONE [Suspect]
     Active Substance: PREDNISOLONE
     Indication: Anti-glomerular basement membrane disease
     Dosage: UNK
     Route: 048
  3. CYCLOPHOSPHAMIDE [Suspect]
     Active Substance: CYCLOPHOSPHAMIDE
     Indication: Anti-glomerular basement membrane disease
     Dosage: 1 GRAM, TOTAL (ON DAY 3)
  4. METHYLPREDNISOLONE [Suspect]
     Active Substance: METHYLPREDNISOLONE
     Indication: Anti-glomerular basement membrane disease
     Dosage: PULSES
  5. CEFUROXIME [Concomitant]
     Active Substance: CEFUROXIME
     Dosage: 1.5 G
     Route: 042
  6. TAZOBACTAM [Concomitant]
     Active Substance: TAZOBACTAM
     Indication: Antibiotic therapy
     Dosage: UNK
  7. IRON [Concomitant]
     Active Substance: IRON
     Dosage: UNK
     Route: 042
  8. OXYGEN [Concomitant]
     Active Substance: OXYGEN
     Dosage: UNK (HIGH-FLOW)
  9. ACYCLOVIR [Concomitant]
     Active Substance: ACYCLOVIR
     Indication: Prophylaxis

REACTIONS (7)
  - Gestational diabetes [Unknown]
  - Superimposed pre-eclampsia [Unknown]
  - Premature delivery [Unknown]
  - Cytomegalovirus infection reactivation [Unknown]
  - Caesarean section [Unknown]
  - Intentional product use issue [Unknown]
  - Maternal exposure during pregnancy [Unknown]
